FAERS Safety Report 10173427 (Version 1)
Quarter: 2014Q2

REPORT INFORMATION
  Report Type: Spontaneous
  Country: US (occurrence: US)
  Receive Date: 20140515
  Receipt Date: 20140515
  Transmission Date: 20141212
  Serious: No
  Sender: FDA-Public Use
  Company Number: US-BAUSCH-BL-2013-003920

PATIENT
  Age: 74 Year
  Sex: Female

DRUGS (5)
  1. BROMDAY 0.09% [Suspect]
     Indication: PREOPERATIVE CARE
     Dosage: 1 DROP; DAILY; RIGHT EYE
     Route: 047
     Dates: start: 20130618, end: 20130624
  2. BROMDAY 0.09% [Suspect]
     Indication: POSTOPERATIVE CARE
     Dosage: 1 DROP; FOUR TIMES A DAY; RIGHT EYE
     Route: 047
     Dates: start: 20130625
  3. CIPROFLOXACIN [Concomitant]
     Indication: PREOPERATIVE CARE
     Dosage: 1 DROP; FOUR TIMES A DAY; RIGHT EYE
     Route: 047
     Dates: start: 20130618, end: 20130624
  4. CIPROFLOXACIN [Concomitant]
     Indication: POSTOPERATIVE CARE
  5. PREDNISOLONE [Concomitant]
     Indication: POSTOPERATIVE CARE
     Dosage: 1 DROP; FOUR TIMES A DAY; RIGHT EYE
     Route: 047
     Dates: start: 20130619, end: 20130624

REACTIONS (1)
  - Vitreous floaters [Not Recovered/Not Resolved]
